FAERS Safety Report 7283911 (Version 3)
Quarter: 2015Q1

REPORT INFORMATION
  Report Type: Report from Study
  Country: CN (occurrence: CN)
  Receive Date: 20100218
  Receipt Date: 20150112
  Transmission Date: 20150721
  Serious: Yes (Hospitalization)
  Sender: FDA-Public Use
  Company Number: CN-ROCHE-684779

PATIENT
  Age: 68 Year
  Sex: Male
  Weight: 60 kg

DRUGS (6)
  1. PLACEBO [Suspect]
     Active Substance: UNSPECIFIED INGREDIENT
     Dosage: FORM: INFUSION. FREQUENCY: D1Q3W. CYCLE 3, DRUG PERMANENTLY DISCONTINUED.
     Route: 042
     Dates: start: 20100115, end: 20100209
  2. CISPLATIN. [Suspect]
     Active Substance: CISPLATIN
     Indication: METASTATIC GASTRIC CANCER
     Dosage: CYCLE 1. FREQUENCY AS PER PROTOCOL.
     Route: 042
  3. CAPECITABINE. [Suspect]
     Active Substance: CAPECITABINE
     Dosage: FREQUENCY: D1-14Q3WEEKS. CYCLE 3. UNITS: MG1300. DRUG WAS TEMPORARILY INTURRUPTED.
     Route: 048
     Dates: start: 20100115, end: 20100124
  4. PLACEBO [Suspect]
     Active Substance: UNSPECIFIED INGREDIENT
     Indication: METASTATIC GASTRIC CANCER
     Dosage: CYCLE 1. FREQUENCY AS PER PROTOCOL.
     Route: 042
     Dates: start: 20091121
  5. CAPECITABINE. [Suspect]
     Active Substance: CAPECITABINE
     Indication: METASTATIC GASTRIC CANCER
     Dosage: CYCLE 1. REQUENCY AS PER PROTOCOL.
     Route: 048
  6. CISPLATIN. [Suspect]
     Active Substance: CISPLATIN
     Dosage: FORM: INFUSION.FREQUENCY: D1Q3W. UNIT: MG101.4.LAST DOSE PRIOR TO EVENT: 15 JANUARY 2010. CYCLE 3.
     Route: 042
     Dates: start: 20100115, end: 20100209

REACTIONS (1)
  - Cerebral ischaemia [Recovered/Resolved]

NARRATIVE: CASE EVENT DATE: 20100124
